FAERS Safety Report 17591647 (Version 1)
Quarter: 2020Q1

REPORT INFORMATION
  Report Type: Spontaneous
  Country: BE (occurrence: BE)
  Receive Date: 20200327
  Receipt Date: 20200327
  Transmission Date: 20200409
  Serious: Yes (Disabling, Other)
  Sender: FDA-Public Use
  Company Number: None

PATIENT
  Sex: Male
  Weight: 90 kg

DRUGS (1)
  1. FINASTERIDE. [Suspect]
     Active Substance: FINASTERIDE
     Indication: ALOPECIA
     Route: 048

REACTIONS (11)
  - Infertility male [None]
  - Impaired quality of life [None]
  - Sleep apnoea syndrome [None]
  - Disturbance in attention [None]
  - Semen discolouration [None]
  - Nightmare [None]
  - Erectile dysfunction [None]
  - Feeling abnormal [None]
  - Libido disorder [None]
  - Fatigue [None]
  - Gluten sensitivity [None]
